FAERS Safety Report 7033206-6 (Version None)
Quarter: 2010Q4

REPORT INFORMATION
  Report Type: 
  Country: None (occurrence: None)
  Receive Date: 20101007
  Receipt Date: 20100922
  Transmission Date: 20110411
  Serious: Yes (Hospitalization, Other)
  Sender: FDA-Public Use
  Company Number: PHEH2004US08275

PATIENT
  Sex: Female

DRUGS (28)
  1. ZOMETA [Suspect]
     Indication: BREAST CANCER
     Dosage: 4 MG MONTHLY
     Route: 042
     Dates: start: 20020113, end: 20040619
  2. FOSAMAX [Suspect]
     Route: 048
  3. NAVELBINE [Concomitant]
  4. COUMADIN [Concomitant]
     Dosage: 4 MG 4 D WKLY 2 MG 3 D WKLY
  5. FAMVIR [Concomitant]
     Indication: HERPES VIRUS INFECTION
     Dosage: 250 MG, QD
  6. NEXIUM [Concomitant]
     Dosage: 20 MG, QD
  7. EVISTA [Concomitant]
     Dosage: 60 MG, QD
  8. DETROL [Concomitant]
     Dosage: 4 MG, QD
  9. TRAZODONE HCL [Concomitant]
     Dosage: 100 MG, PRN, HS
  10. CLONAZEPAM [Concomitant]
     Indication: INSOMNIA
     Dosage: .5 MG, PRN, HS
  11. CELEXA [Concomitant]
     Dosage: 40 MG, QD
  12. NITROFURANTOIN [Concomitant]
     Dosage: 50 MG, QD
  13. TAXANES [Concomitant]
  14. OXYFAST [Concomitant]
  15. CYTOXAN [Concomitant]
  16. TYLENOL W/ CODEINE NO. 3 [Concomitant]
  17. VICODIN [Concomitant]
  18. PAXIL [Concomitant]
     Dosage: UNK, UNK
  19. PRILOSEC [Concomitant]
     Dosage: UNK, UNK
  20. HEXALEN [Concomitant]
     Indication: OVARIAN CANCER
     Dosage: UNK, DAILY
     Dates: end: 20041110
  21. MIACALCIN [Concomitant]
     Dosage: UNK, UNK
  22. TOPOTECAN [Concomitant]
     Dosage: UNK, UNK
     Dates: end: 20031112
  23. CARBOPLATIN [Concomitant]
     Indication: OVARIAN CANCER
     Dosage: UNK, UNK
  24. TAXOL [Concomitant]
     Indication: OVARIAN CANCER
     Dosage: UNK, UNK
  25. DOXIL [Concomitant]
     Indication: OVARIAN CANCER
     Dosage: UNK, UNK
  26. GEMZAR [Concomitant]
     Indication: OVARIAN CANCER
     Dosage: UNK, UNK
     Dates: end: 20020101
  27. COMPAZINE [Concomitant]
     Indication: NAUSEA
     Dosage: 10 MG, UNK
  28. VIOXX [Concomitant]
     Indication: MYALGIA
     Dosage: 25 MG, UNK

REACTIONS (54)
  - ABDOMINAL DISTENSION [None]
  - ACQUIRED OESOPHAGEAL WEB [None]
  - ANAEMIA [None]
  - ANXIETY [None]
  - ARTHRALGIA [None]
  - ASPIRATION PLEURAL CAVITY [None]
  - ASTHENIA [None]
  - ATELECTASIS [None]
  - BACK PAIN [None]
  - BILE DUCT OBSTRUCTION [None]
  - BILE DUCT STENT INSERTION [None]
  - BONE SCAN ABNORMAL [None]
  - CONTUSION [None]
  - CYSTITIS [None]
  - DEBRIDEMENT [None]
  - DIARRHOEA [None]
  - DIVERTICULUM [None]
  - DYSPNOEA [None]
  - FALL [None]
  - FLANK PAIN [None]
  - GASTRIC POLYPS [None]
  - GASTROOESOPHAGEAL REFLUX DISEASE [None]
  - HAEMATURIA [None]
  - HIATUS HERNIA [None]
  - HYDRONEPHROSIS [None]
  - HYPERLIPIDAEMIA [None]
  - INCONTINENCE [None]
  - INJURY [None]
  - LIVER DISORDER [None]
  - LYMPHADENOPATHY [None]
  - MALIGNANT NEOPLASM PROGRESSION [None]
  - METASTASES TO LIVER [None]
  - METASTASES TO THYROID [None]
  - MYALGIA [None]
  - MYOCARDIAL INFARCTION [None]
  - NAUSEA [None]
  - OSTEOMYELITIS [None]
  - OSTEONECROSIS OF JAW [None]
  - OSTEOPOROSIS [None]
  - OVARIAN CANCER METASTATIC [None]
  - PAIN [None]
  - PLEURAL EFFUSION [None]
  - PORTAL VEIN OCCLUSION [None]
  - PYREXIA [None]
  - RENAL CYST [None]
  - SINUS DISORDER [None]
  - SINUS TACHYCARDIA [None]
  - SURGERY [None]
  - SWELLING [None]
  - THROMBOCYTOPENIA [None]
  - TOOTH EXTRACTION [None]
  - TOOTH INFECTION [None]
  - TOOTHACHE [None]
  - URGE INCONTINENCE [None]
